FAERS Safety Report 10347405 (Version 1)
Quarter: 2014Q3

REPORT INFORMATION
  Report Type: Spontaneous
  Country: US (occurrence: None)
  Receive Date: 20140728
  Receipt Date: 20140728
  Transmission Date: 20150326
  Serious: Yes (Other)
  Sender: FDA-Public Use
  Company Number: None

PATIENT
  Age: 59 Year
  Sex: Male
  Weight: 143.79 kg

DRUGS (7)
  1. MORPHINE SULFPHAT [Concomitant]
  2. MELOXICAM. [Concomitant]
     Active Substance: MELOXICAM
  3. NOVOLOG [Concomitant]
     Active Substance: INSULIN ASPART
  4. TOPIRAMATE. [Concomitant]
     Active Substance: TOPIRAMATE
  5. VIAGRA [Concomitant]
     Active Substance: SILDENAFIL CITRATE
  6. BUPROPION SR 150 MG UKNOWN [Suspect]
     Active Substance: BUPROPION
     Indication: SMOKING CESSATION THERAPY
     Dosage: UKNOWN ORAL LESS THAN 1 MONTH
     Route: 048
  7. ATORVASTATIN [Concomitant]
     Active Substance: ATORVASTATIN

REACTIONS (2)
  - Feeling abnormal [None]
  - Convulsion [None]

NARRATIVE: CASE EVENT DATE: 20140724
